FAERS Safety Report 25239065 (Version 1)
Quarter: 2025Q2

REPORT INFORMATION
  Report Type: Spontaneous
  Country: SG (occurrence: SG)
  Receive Date: 20250425
  Receipt Date: 20250425
  Transmission Date: 20250716
  Serious: Yes (Other)
  Sender: Haleon PLC
  Company Number: SG-HALEON-2239448

PATIENT
  Age: 46 Year
  Sex: Male

DRUGS (1)
  1. DICLOFENAC [Suspect]
     Active Substance: DICLOFENAC
     Indication: Product used for unknown indication

REACTIONS (4)
  - Pancytopenia [Unknown]
  - Rash erythematous [Unknown]
  - Pruritus [Unknown]
  - Periorbital oedema [Unknown]
